FAERS Safety Report 9819214 (Version 1)
Quarter: 2014Q1

REPORT INFORMATION
  Report Type: Report from Study
  Country: HU (occurrence: HU)
  Receive Date: 20140115
  Receipt Date: 20140115
  Transmission Date: 20141002
  Serious: Yes (Other)
  Sender: FDA-Public Use
  Company Number: PHHY2014HU002921

PATIENT
  Age: 36 Year
  Sex: Female

DRUGS (3)
  1. ONBREZ [Suspect]
     Dosage: UNK
     Dates: start: 201312, end: 201312
  2. ONBREZ [Suspect]
     Dosage: UNK
  3. INHALATION THERAPY [Concomitant]
     Dosage: UNK

REACTIONS (3)
  - Vomiting [Recovered/Resolved]
  - Weight decreased [Recovered/Resolved]
  - Cough [Recovered/Resolved]
